FAERS Safety Report 7039819-X (Version None)
Quarter: 2010Q4

REPORT INFORMATION
  Report Type: 
  Country: None (occurrence: None)
  Receive Date: 20101012
  Receipt Date: 20100930
  Transmission Date: 20110411
  Serious: Yes (Other)
  Sender: FDA-Public Use
  Company Number: US-MERCK-1009USA05595

PATIENT
  Age: 59 Year
  Sex: Female
  Weight: 82 kg

DRUGS (5)
  1. ZOCOR [Suspect]
     Indication: BLOOD CHOLESTEROL INCREASED
     Route: 048
     Dates: end: 20100101
  2. AROMASIN [Suspect]
     Indication: BREAST CANCER
     Route: 048
     Dates: start: 20030101
  3. DEPO-PROVERA [Suspect]
     Route: 065
  4. LISINOPRIL [Concomitant]
     Indication: HYPERTENSION
     Route: 048
  5. NEXIUM [Concomitant]
     Route: 065

REACTIONS (7)
  - ANAL POLYP [None]
  - CONTUSION [None]
  - HYPERSENSITIVITY [None]
  - INTESTINAL POLYP [None]
  - PRECANCEROUS CELLS PRESENT [None]
  - RADIATION SKIN INJURY [None]
  - RECTAL POLYP [None]
